FAERS Safety Report 18147832 (Version 1)
Quarter: 2020Q3

REPORT INFORMATION
  Report Type: Spontaneous
  Country: DE (occurrence: DE)
  Receive Date: 20200813
  Receipt Date: 20200813
  Transmission Date: 20201103
  Serious: Yes (Hospitalization)
  Sender: FDA-Public Use
  Company Number: DE-SA-2020SA207360

PATIENT

DRUGS (6)
  1. CLOPIDOGREL BISULFATE. [Suspect]
     Active Substance: CLOPIDOGREL BISULFATE
     Dosage: 75 MG, QD (75 MG, 1?0?0?0)
     Route: 065
  2. TORASEMIDE [Concomitant]
     Active Substance: TORSEMIDE
     Dosage: 5 MG, QD (5 MG, 1?0?0?0)
     Route: 065
  3. RAMIPRIL. [Concomitant]
     Active Substance: RAMIPRIL
     Dosage: 5 MG, QD (5 MG, 1?0?0?0)
     Route: 065
  4. METHIONINE [Concomitant]
     Active Substance: METHIONINE
     Dosage: UNK UNK, QD (1?0?0?0)
     Route: 065
  5. SIMVASTATIN. [Concomitant]
     Active Substance: SIMVASTATIN
     Dosage: 40 MG, QD (40 MG, 0?1?0?0)
     Route: 065
  6. METOPROLOL. [Concomitant]
     Active Substance: METOPROLOL
     Dosage: 95 MG, QD (95 MG, 0?1?0?0)
     Route: 065

REACTIONS (3)
  - Dysuria [Unknown]
  - Haematuria [Unknown]
  - Urinary hesitation [Unknown]
